FAERS Safety Report 9939707 (Version 1)
Quarter: 2014Q1

REPORT INFORMATION
  Report Type: Report from Study
  Country: US (occurrence: US)
  Receive Date: 20140303
  Receipt Date: 20140303
  Transmission Date: 20141002
  Serious: No
  Sender: FDA-Public Use
  Company Number: US-ABBVIE-13P-163-1036298-00

PATIENT
  Age: 30 Year
  Sex: Female
  Weight: 99.88 kg

DRUGS (6)
  1. HUMIRA [Suspect]
     Indication: CROHN^S DISEASE
     Dosage: 160 MILLIGRAM LOADING DOSE
     Dates: start: 20130107
  2. NEXIUM [Concomitant]
     Indication: GASTROOESOPHAGEAL REFLUX DISEASE
  3. HYCOSAMINE [Concomitant]
     Indication: VITAMIN SUPPLEMENTATION
  4. BUDESONIDE [Concomitant]
     Indication: CROHN^S DISEASE
  5. IRON [Concomitant]
     Indication: HYPOVITAMINOSIS
  6. WELCHOL [Concomitant]
     Indication: BLOOD CHOLESTEROL INCREASED

REACTIONS (1)
  - Fatigue [Not Recovered/Not Resolved]
